FAERS Safety Report 7406086-4 (Version None)
Quarter: 2011Q2

REPORT INFORMATION
  Report Type: 
  Country: None (occurrence: None)
  Receive Date: 20110411
  Receipt Date: 20110315
  Transmission Date: 20111010
  Serious: Yes (Hospitalization)
  Sender: FDA-Public Use
  Company Number: US-BAYER-2010-000305

PATIENT
  Age: 34 Year
  Sex: Female
  Weight: 142 kg

DRUGS (3)
  1. YASMIN [Suspect]
     Indication: ORAL CONTRACEPTION
     Dosage: UNK
     Route: 048
     Dates: start: 20050101, end: 20080101
  2. OCELLA [Suspect]
     Indication: ORAL CONTRACEPTION
     Dosage: UNK
     Dates: start: 20050101, end: 20080101
  3. BUPAP [Concomitant]
     Indication: MIGRAINE
     Dosage: UNK
     Dates: start: 20060501

REACTIONS (5)
  - MENTAL DISORDER [None]
  - SPEECH DISORDER [None]
  - PAIN [None]
  - CEREBROVASCULAR ACCIDENT [None]
  - COGNITIVE DISORDER [None]
